FAERS Safety Report 6418115-5 (Version None)
Quarter: 2009Q4

REPORT INFORMATION
  Report Type: 
  Country: None (occurrence: None)
  Receive Date: 20091028
  Receipt Date: 20091019
  Transmission Date: 20100525
  Serious: Yes (Other)
  Sender: FDA-Public Use
  Company Number: GR-ABBOTT-09P-066-0603496-00

PATIENT
  Age: 52 Year
  Sex: Male

DRUGS (2)
  1. DEPAKENE [Suspect]
     Indication: EMOTIONAL DISORDER
  2. RISPERIDONE [Concomitant]
     Indication: EMOTIONAL DISORDER

REACTIONS (2)
  - PLEURISY [None]
  - PULMONARY EOSINOPHILIA [None]
